FAERS Safety Report 12566474 (Version 2)
Quarter: 2016Q3

REPORT INFORMATION
  Report Type: Spontaneous
  Country: US (occurrence: US)
  Receive Date: 20160718
  Receipt Date: 20160731
  Transmission Date: 20161109
  Serious: Yes (Hospitalization, Other)
  Sender: FDA-Public Use
  Company Number: GXBR2016US002232

PATIENT
  Sex: Female

DRUGS (2)
  1. LISINOPRIL/HCTZ TABLETS [Suspect]
     Active Substance: HYDROCHLOROTHIAZIDE\LISINOPRIL
     Indication: HYPERTENSION
     Dosage: 1 DF, QD
     Route: 048
     Dates: start: 2015
  2. LISINOPRIL/HCTZ TABLETS [Suspect]
     Active Substance: HYDROCHLOROTHIAZIDE\LISINOPRIL
     Dosage: 2 DF, QD
     Route: 048

REACTIONS (6)
  - Acute kidney injury [Recovered/Resolved]
  - Loss of consciousness [Unknown]
  - Cystitis [Unknown]
  - Blood sodium decreased [Unknown]
  - Blood potassium decreased [Recovered/Resolved]
  - Anaemia [Unknown]
